FAERS Safety Report 14060559 (Version 2)
Quarter: 2017Q4

REPORT INFORMATION
  Report Type: Report from Study
  Country: None (occurrence: CO)
  Receive Date: 20171007
  Receipt Date: 20171030
  Transmission Date: 20180321
  Serious: Yes (Other)
  Sender: FDA-Public Use
  Company Number: CO-ABBVIE-17K-036-2123636-00

PATIENT
  Age: 55 Year
  Sex: Female
  Weight: 72 kg

DRUGS (2)
  1. METHOTREXATE. [Concomitant]
     Active Substance: METHOTREXATE
     Indication: PRODUCT USED FOR UNKNOWN INDICATION
  2. HUMIRA [Suspect]
     Active Substance: ADALIMUMAB
     Indication: ANKYLOSING SPONDYLITIS
     Route: 058
     Dates: start: 20091006, end: 20170829

REACTIONS (6)
  - Pulmonary granuloma [Recovering/Resolving]
  - Spinal pain [Unknown]
  - Pain in extremity [Recovering/Resolving]
  - Influenza [Unknown]
  - Fall [Recovering/Resolving]
  - Pulmonary calcification [Recovering/Resolving]

NARRATIVE: CASE EVENT DATE: 201704
